FAERS Safety Report 5810909-X (Version None)
Quarter: 2008Q3

REPORT INFORMATION
  Report Type: 
  Country: None (occurrence: None)
  Receive Date: 20080716
  Receipt Date: 20080704
  Transmission Date: 20090109
  Serious: Yes (Other)
  Sender: FDA-Public Use
  Company Number: PHNR2006AU01046

PATIENT
  Sex: Male

DRUGS (6)
  1. CLOZARIL [Suspect]
     Indication: SCHIZOPHRENIA
     Dosage: 25-475 MG DAILY
     Dates: start: 20031016
  2. CLOZARIL [Suspect]
     Dosage: 12.5 - 400 MG DAILY
     Dates: start: 20030511, end: 20030707
  3. CLOZARIL [Suspect]
     Dosage: 12.5 - 400 MG DAILY
     Dates: start: 20011012, end: 20030429
  4. CLOZARIL [Suspect]
     Dosage: 25 - 350MG DAILY
     Dates: start: 20000406, end: 20010724
  5. CLOZARIL [Suspect]
     Dosage: 150-350MG DAILY
     Dates: start: 19990615, end: 20000322
  6. CLOZARIL [Suspect]
     Dosage: 300 MG, BID
     Route: 048

REACTIONS (4)
  - CARDIOMYOPATHY [None]
  - ECHOCARDIOGRAM ABNORMAL [None]
  - LEFT VENTRICULAR HYPERTROPHY [None]
  - VENTRICULAR DYSFUNCTION [None]
